FAERS Safety Report 10663636 (Version 2)
Quarter: 2014Q4

REPORT INFORMATION
  Report Type: Spontaneous
  Country: FR (occurrence: FR)
  Receive Date: 20141219
  Receipt Date: 20141219
  Transmission Date: 20150529
  Serious: Yes (Other)
  Sender: FDA-Public Use
  Company Number: FR-009507513-1411FRA007413

PATIENT
  Age: 44 Year
  Sex: Female
  Weight: 74 kg

DRUGS (2)
  1. NEXPLANON [Suspect]
     Active Substance: ETONOGESTREL
     Indication: CONTRACEPTION
     Dosage: UNK
     Route: 059
     Dates: start: 201103, end: 20140611
  2. NEXPLANON [Suspect]
     Active Substance: ETONOGESTREL
     Dosage: UNK, RIGHT ARM
     Route: 058
     Dates: start: 20140611

REACTIONS (10)
  - Breast haemorrhage [Unknown]
  - Incorrect drug administration duration [Unknown]
  - Vaginal haemorrhage [Unknown]
  - Device difficult to use [Recovered/Resolved]
  - Breast discharge [Unknown]
  - Depression [Unknown]
  - Breast cancer [Unknown]
  - Implant site haemorrhage [Unknown]
  - Breast calcifications [Unknown]
  - Polymenorrhoea [Unknown]

NARRATIVE: CASE EVENT DATE: 2014
